FAERS Safety Report 15758196 (Version 1)
Quarter: 2018Q4

REPORT INFORMATION
  Report Type: Spontaneous
  Country: CA (occurrence: CA)
  Receive Date: 20181225
  Receipt Date: 20181225
  Transmission Date: 20190205
  Serious: Yes (Other)
  Sender: FDA-Public Use
  Company Number: CA-CELLTRION INC.-2018CA021679

PATIENT

DRUGS (11)
  1. INFLECTRA [Suspect]
     Active Substance: INFLIXIMAB-DYYB
     Indication: COLITIS ULCERATIVE
     Dosage: 5 MG/KG, CYCLIC (WEEK 2, 6 AND EVERY 8 WEEKS THEREAFTER)
     Route: 042
     Dates: start: 20180704, end: 20180704
  2. PANTOPRAZOLE [Concomitant]
     Active Substance: PANTOPRAZOLE
     Dosage: UNK
  3. INFLECTRA [Suspect]
     Active Substance: INFLIXIMAB-DYYB
     Dosage: 5 MG/KG, CYCLIC (WEEK 2, 6 AND EVERY 8 WEEKS THEREAFTER)
     Route: 042
     Dates: start: 20180707, end: 20180707
  4. INFLECTRA [Suspect]
     Active Substance: INFLIXIMAB-DYYB
     Dosage: UNK
     Route: 042
     Dates: start: 20180822
  5. MEZAVANT [Concomitant]
     Active Substance: MESALAMINE
     Dosage: UNK
  6. AZATHIOPRINE. [Concomitant]
     Active Substance: AZATHIOPRINE
     Dosage: 100 MG, DAILY
  7. PREDNISONE. [Concomitant]
     Active Substance: PREDNISONE
     Dosage: UNK
     Dates: start: 20180712
  8. IMURAN [Concomitant]
     Active Substance: AZATHIOPRINE
     Dosage: UNK
  9. INFLECTRA [Suspect]
     Active Substance: INFLIXIMAB-DYYB
     Dosage: UNK
     Route: 042
     Dates: start: 20181016
  10. INFLECTRA [Suspect]
     Active Substance: INFLIXIMAB-DYYB
     Dosage: 10 MG/KG, CYCLIC(10 MG/KG WEEKS2, 6, AND Q 8 WEEKS THEREAFTER)
     Route: 042
     Dates: start: 20180725
  11. INFLECTRA [Suspect]
     Active Substance: INFLIXIMAB-DYYB
     Dosage: 700 MG EVERY 2, 6 WEEKS THEN EVERY 8 WEEKS;
     Route: 042
     Dates: start: 20181211

REACTIONS (10)
  - Arthralgia [Not Recovered/Not Resolved]
  - Condition aggravated [Unknown]
  - Hypersensitivity [Unknown]
  - Heart rate decreased [Unknown]
  - Quality of life decreased [Unknown]
  - Eye pruritus [Unknown]
  - Rhinitis allergic [Unknown]
  - Lacrimation increased [Unknown]
  - Product use issue [Unknown]
  - Joint swelling [Recovering/Resolving]

NARRATIVE: CASE EVENT DATE: 20180707
